FAERS Safety Report 8461592-9 (Version None)
Quarter: 2012Q2

REPORT INFORMATION
  Report Type: 
  Country: None (occurrence: None)
  Receive Date: 20120625
  Receipt Date: 20120619
  Transmission Date: 20120825
  Serious: Yes (Hospitalization, Other)
  Sender: FDA-Public Use
  Company Number: PHHY2012BR043007

PATIENT
  Sex: Female
  Weight: 61 kg

DRUGS (5)
  1. URSACOL [Concomitant]
     Dosage: 300 MG, UNK
  2. LEVOID [Concomitant]
  3. LAMOTRIGINE [Concomitant]
     Indication: CONVULSION
     Dosage: 1 DF, BID
     Dates: start: 20120101, end: 20120301
  4. TRILEPTAL [Suspect]
     Indication: CONVULSION
     Dosage: 22 ML, DAILY (IN 3 DOSAGES)
     Route: 048
     Dates: start: 20090101, end: 20120401
  5. VALPROATE SODIUM [Concomitant]
     Indication: CONVULSION
     Dosage: 2.5 ML, BID
     Route: 048
     Dates: end: 20120401

REACTIONS (5)
  - HEPATIC CALCIFICATION [None]
  - HYPOTHYROIDISM [None]
  - CONVULSION [None]
  - SPEECH DISORDER [None]
  - DYSPHAGIA [None]
